FAERS Safety Report 9812381 (Version 2)
Quarter: 2014Q1

REPORT INFORMATION
  Report Type: Spontaneous
  Country: US (occurrence: US)
  Receive Date: 20140113
  Receipt Date: 20140123
  Transmission Date: 20141002
  Serious: Yes (Hospitalization)
  Sender: FDA-Public Use
  Company Number: US-BIOGENIDEC-2014BI001846

PATIENT
  Sex: Female

DRUGS (3)
  1. AVONEX [Suspect]
     Indication: MULTIPLE SCLEROSIS
     Route: 030
     Dates: start: 20120430
  2. AVONEX [Suspect]
     Indication: MULTIPLE SCLEROSIS
     Route: 030
     Dates: start: 20120628, end: 20121126
  3. AUBAGIO [Concomitant]

REACTIONS (6)
  - Drug ineffective [Unknown]
  - Multiple sclerosis relapse [Unknown]
  - Abasia [Unknown]
  - Hallucination, visual [Unknown]
  - General symptom [Recovered/Resolved]
  - Dysarthria [Not Recovered/Not Resolved]
